FAERS Safety Report 10249031 (Version 1)
Quarter: 2014Q2

REPORT INFORMATION
  Report Type: Spontaneous
  Country: FI (occurrence: None)
  Receive Date: 20140618
  Receipt Date: 20140618
  Transmission Date: 20141212
  Serious: Yes (Other)
  Sender: FDA-Public Use
  Company Number: SYM-2014-22090

PATIENT
  Age: 53 Year
  Sex: Female

DRUGS (6)
  1. VOXRA [Suspect]
     Indication: DEPRESSION
     Dates: start: 201209
  2. DULOXETINE (DULOXETINE) (DULOXETINE) [Suspect]
     Indication: PRODUCT USED FOR UNKNOWN INDICATION
     Dates: end: 201304
  3. ESCITALOPRAM (ESCITALOPRAM) [Suspect]
     Indication: PRODUCT USED FOR UNKNOWN INDICATION
     Dates: start: 201402, end: 201403
  4. MICARDIS (TELMISARTAN) [Concomitant]
  5. THYROXIN (LEVOTHYROXINE SODIUM) [Concomitant]
  6. DIFORMIN (METFORMIN HYDROCHLORIDE) [Concomitant]

REACTIONS (4)
  - Chest pain [None]
  - Headache [None]
  - Sinus bradycardia [None]
  - Electrocardiogram T wave inversion [None]
